FAERS Safety Report 7657236-6 (Version None)
Quarter: 2011Q3

REPORT INFORMATION
  Report Type: 
  Country: None (occurrence: None)
  Receive Date: 20110804
  Receipt Date: 20110721
  Transmission Date: 20111222
  Serious: Yes (Other)
  Sender: FDA-Public Use
  Company Number: PHHY2011JP66443

PATIENT
  Sex: Male
  Weight: 109 kg

DRUGS (5)
  1. EXJADE [Suspect]
     Indication: IRON OVERLOAD
     Dosage: 1125 MG, DAILY
     Route: 048
     Dates: start: 20100302, end: 20100406
  2. NEORAL [Suspect]
     Indication: MYELODYSPLASTIC SYNDROME
     Dosage: 300 MG, DAILY
     Route: 048
     Dates: start: 20070724
  3. PRIMOBOLAN [Concomitant]
     Indication: MYELODYSPLASTIC SYNDROME
     Dosage: 15 MG, UNK
     Route: 048
     Dates: start: 20070724, end: 20110302
  4. EXJADE [Suspect]
     Dosage: 750 MG, DAILY
     Route: 048
     Dates: start: 20100407, end: 20101214
  5. EXJADE [Suspect]
     Dosage: 500 MG, DAILY
     Route: 048
     Dates: start: 20101215

REACTIONS (2)
  - PROTEIN URINE PRESENT [None]
  - BLOOD CREATININE INCREASED [None]
